FAERS Safety Report 5818976-4 (Version None)
Quarter: 2008Q3

REPORT INFORMATION
  Report Type: 
  Country: None (occurrence: None)
  Receive Date: 20080723
  Receipt Date: 20080715
  Transmission Date: 20090109
  Serious: Yes (Life-Threatening, Other)
  Sender: FDA-Public Use
  Company Number: US-BAYER-200820272NA

PATIENT
  Age: 62 Year
  Sex: Female

DRUGS (1)
  1. CLIMARA [Suspect]
     Indication: DRUG USE FOR UNKNOWN INDICATION
     Route: 062

REACTIONS (18)
  - ABDOMINAL DISTENSION [None]
  - ADVERSE EVENT [None]
  - ANGER [None]
  - ANXIETY [None]
  - BREAST PAIN [None]
  - BRUXISM [None]
  - CHILLS [None]
  - CRYING [None]
  - DEPRESSION [None]
  - DRY EYE [None]
  - HEADACHE [None]
  - HYPERHIDROSIS [None]
  - INSOMNIA [None]
  - LIBIDO DISORDER [None]
  - NERVOUSNESS [None]
  - PANIC REACTION [None]
  - SUICIDAL IDEATION [None]
  - UNEVALUABLE EVENT [None]
